FAERS Safety Report 9988468 (Version 1)
Quarter: 2014Q1

REPORT INFORMATION
  Report Type: Spontaneous
  Country: US (occurrence: US)
  Receive Date: 20140310
  Receipt Date: 20140310
  Transmission Date: 20141002
  Serious: No
  Sender: FDA-Public Use
  Company Number: US-BIOGENIDEC-2014BI017319

PATIENT
  Age: 43 Year
  Sex: Male

DRUGS (21)
  1. TECFIDERA [Suspect]
     Indication: MULTIPLE SCLEROSIS
     Route: 048
  2. BACLOFEN [Concomitant]
  3. CATECHIN [Concomitant]
  4. FISH OIL [Concomitant]
  5. FOLIC ACID [Concomitant]
  6. GLUCOSAMINE CHONDROITIN ADV [Concomitant]
  7. METOPROLOL TARTRATE [Concomitant]
  8. MIRALAX [Concomitant]
  9. NEXIUM [Concomitant]
  10. NIACIN [Concomitant]
  11. NYSTATIN [Concomitant]
  12. OXYBUTYNIN CHLORIDE [Concomitant]
  13. QUERCETIN [Concomitant]
  14. RIBOFLAVIN [Concomitant]
  15. THIAMINE [Concomitant]
  16. TIZANIDINE HCL [Concomitant]
  17. VITAMIN B-6 [Concomitant]
  18. VITAMIN C [Concomitant]
  19. VITAMIN D3 [Concomitant]
  20. VITAMIN E [Concomitant]
  21. METAMUCIL [Concomitant]

REACTIONS (4)
  - Productive cough [Unknown]
  - Oropharyngeal candidiasis [Unknown]
  - Tinea cruris [Unknown]
  - Flushing [Unknown]
